FAERS Safety Report 14864732 (Version 6)
Quarter: 2018Q3

REPORT INFORMATION
  Report Type: Spontaneous
  Country: US (occurrence: US)
  Receive Date: 20180508
  Receipt Date: 20180815
  Transmission Date: 20181010
  Serious: No
  Sender: FDA-Public Use
  Company Number: US-ACTELION-A-US2018-170865

PATIENT
  Age: 52 Year
  Sex: Female
  Weight: 89.34 kg

DRUGS (7)
  1. UPTRAVI [Suspect]
     Active Substance: SELEXIPAG
     Indication: PULMONARY ARTERIAL HYPERTENSION
     Dosage: 1000 MCG, BID
     Route: 048
  2. AMBRISENTAN [Suspect]
     Active Substance: AMBRISENTAN
     Dosage: 5 MG, QD
     Route: 065
     Dates: start: 20170627
  3. UPTRAVI [Suspect]
     Active Substance: SELEXIPAG
     Dosage: 600 MCG, BID
     Route: 048
  4. UPTRAVI [Suspect]
     Active Substance: SELEXIPAG
     Dosage: 1200 MCG, BID
     Route: 048
  5. AMBRISENTAN [Suspect]
     Active Substance: AMBRISENTAN
     Indication: PRODUCT USED FOR UNKNOWN INDICATION
     Dosage: 10 MG, QD
     Route: 065
     Dates: start: 20170627
  6. UPTRAVI [Suspect]
     Active Substance: SELEXIPAG
     Dosage: UNK
     Route: 048
  7. UPTRAVI [Suspect]
     Active Substance: SELEXIPAG
     Dosage: 800 MCG, BID
     Route: 048

REACTIONS (26)
  - Nasal congestion [Unknown]
  - Contusion [Not Recovered/Not Resolved]
  - Feeling hot [Not Recovered/Not Resolved]
  - Urticaria [Unknown]
  - Dizziness [Unknown]
  - Myalgia [Not Recovered/Not Resolved]
  - Increased tendency to bruise [Unknown]
  - Pain in extremity [Not Recovered/Not Resolved]
  - Hypotension [Unknown]
  - Condition aggravated [Unknown]
  - Gingival pain [Not Recovered/Not Resolved]
  - Glossodynia [Unknown]
  - Arthralgia [Not Recovered/Not Resolved]
  - Rash macular [Not Recovered/Not Resolved]
  - Pain in jaw [Not Recovered/Not Resolved]
  - Flushing [Unknown]
  - Vascular pain [Not Recovered/Not Resolved]
  - Vomiting [Not Recovered/Not Resolved]
  - Hyperaesthesia [Not Recovered/Not Resolved]
  - Bedridden [Unknown]
  - Malaise [Unknown]
  - Ear pain [Not Recovered/Not Resolved]
  - Headache [Recovering/Resolving]
  - Vasodilatation [Not Recovered/Not Resolved]
  - Nausea [Not Recovered/Not Resolved]
  - Hot flush [Not Recovered/Not Resolved]

NARRATIVE: CASE EVENT DATE: 20180426
